FAERS Safety Report 6725064-1 (Version None)
Quarter: 2010Q2

REPORT INFORMATION
  Report Type: 
  Country: None (occurrence: None)
  Receive Date: 20100514
  Receipt Date: 20100504
  Transmission Date: 20101027
  Serious: Yes (Other)
  Sender: FDA-Public Use
  Company Number: US-RB-009105-10

PATIENT
  Age: 62 Year
  Sex: Male

DRUGS (5)
  1. DELSYM [Suspect]
     Indication: COUGH
     Dosage: TOOK ONE DOSE OF PRODUCT
     Route: 048
     Dates: start: 20100502
  2. ULORIC [Concomitant]
  3. LISINOPRIL [Concomitant]
  4. DIURETIC [Concomitant]
  5. INDOMETHACIN [Concomitant]

REACTIONS (4)
  - BLOOD PRESSURE INCREASED [None]
  - DIZZINESS [None]
  - FEELING ABNORMAL [None]
  - PULSE PRESSURE INCREASED [None]
